FAERS Safety Report 21411419 (Version 1)
Quarter: 2022Q4

REPORT INFORMATION
  Report Type: Spontaneous
  Country: US (occurrence: US)
  Receive Date: 20221005
  Receipt Date: 20221005
  Transmission Date: 20230112
  Serious: Yes (Hospitalization, Other)
  Sender: FDA-Public Use
  Company Number: US-BAXTER-2022BAX020965

PATIENT
  Age: 28 Year
  Sex: Male

DRUGS (8)
  1. NAFCILLIN [Suspect]
     Active Substance: NAFCILLIN SODIUM
     Indication: Osteomyelitis
     Route: 042
  2. NAFCILLIN [Suspect]
     Active Substance: NAFCILLIN SODIUM
     Indication: Staphylococcal infection
  3. RIFAMPIN [Suspect]
     Active Substance: RIFAMPIN
     Indication: Osteomyelitis
     Route: 048
  4. RIFAMPIN [Suspect]
     Active Substance: RIFAMPIN
     Indication: Staphylococcal infection
  5. GENTAMICIN [Concomitant]
     Active Substance: GENTAMICIN
     Dosage: PERIOPERATIVE
     Route: 065
  6. CEFAZOLIN [Concomitant]
     Active Substance: CEFAZOLIN
     Dosage: PERIOPERATIVE
     Route: 065
  7. TOBRAMYCIN [Concomitant]
     Active Substance: TOBRAMYCIN
     Dosage: INTRAMEDULLARY ANTIBIOTIC-IMPREGNATED (TOBRAMYCIN AND AMIKACIN) POLYMETHYLMETHACRYLATE CEMENT
     Route: 065
  8. AMIKACIN [Concomitant]
     Active Substance: AMIKACIN
     Dosage: INTRAMEDULLARY ANTIBIOTIC-IMPREGNATED (TOBRAMYCIN AND AMIKACIN) POLYMETHYLMETHACRYLATE CEMENT
     Route: 065

REACTIONS (7)
  - Neutropenic colitis [Recovered/Resolved]
  - Abdominal pain [Recovered/Resolved]
  - Vomiting [Recovered/Resolved]
  - Diarrhoea [Recovered/Resolved]
  - Pyrexia [Recovered/Resolved]
  - Anaemia [Recovered/Resolved]
  - Neutropenia [Recovered/Resolved]
